FAERS Safety Report 10912513 (Version 1)
Quarter: 2015Q1

REPORT INFORMATION
  Report Type: Spontaneous
  Country: US (occurrence: None)
  Receive Date: 20150310
  Receipt Date: 20150310
  Transmission Date: 20150721
  Serious: No
  Sender: FDA-Public Use
  Company Number: None

PATIENT
  Age: 34 Year
  Sex: Female

DRUGS (10)
  1. SPRINTEC-28 [Concomitant]
  2. AMPYRA [Suspect]
     Active Substance: DALFAMPRIDINE
     Indication: MULTIPLE SCLEROSIS
     Route: 048
     Dates: start: 201306, end: 201308
  3. ATENOLOL. [Concomitant]
     Active Substance: ATENOLOL
  4. CYCLOBENZAPRINE [Concomitant]
     Active Substance: CYCLOBENZAPRINE
  5. FLUOXETINE [Concomitant]
     Active Substance: FLUOXETINE\FLUOXETINE HYDROCHLORIDE
  6. LORAZEPAM. [Concomitant]
     Active Substance: LORAZEPAM
  7. K-TAB [Concomitant]
     Active Substance: POTASSIUM CHLORIDE
  8. CITALOPRAM [Concomitant]
     Active Substance: CITALOPRAM HYDROBROMIDE
  9. HYDROCHLOROTHIAZIDE. [Concomitant]
     Active Substance: HYDROCHLOROTHIAZIDE
  10. AMANTADINE [Concomitant]
     Active Substance: AMANTADINE

REACTIONS (5)
  - Asthenia [None]
  - Fatigue [None]
  - Paraesthesia [None]
  - Dizziness [None]
  - Performance status decreased [None]

NARRATIVE: CASE EVENT DATE: 20130827
